FAERS Safety Report 8816732 (Version 2)
Quarter: 2012Q4

REPORT INFORMATION
  Report Type: Spontaneous
  Country: ES (occurrence: None)
  Receive Date: 20121001
  Receipt Date: 20121003
  Transmission Date: 20130627
  Serious: Yes (Other)
  Sender: FDA-Public Use
  Company Number: 2012S1001113

PATIENT
  Age: 66 Year
  Sex: Male

DRUGS (1)
  1. ALIPZA [Suspect]
     Indication: DRUG USE FOR UNKNOWN INDICATION
     Dates: start: 20120322

REACTIONS (3)
  - Rhabdomyolysis [None]
  - Abdominal discomfort [None]
  - Insomnia [None]
